FAERS Safety Report 9776992 (Version 1)
Quarter: 2013Q4

REPORT INFORMATION
  Report Type: Report from Study
  Country: DE (occurrence: DE)
  Receive Date: 20131221
  Receipt Date: 20131221
  Transmission Date: 20140711
  Serious: Yes (Other)
  Sender: FDA-Public Use
  Company Number: DE-ROCHE-1321353

PATIENT
  Age: 77 Year
  Sex: Male

DRUGS (3)
  1. BEVACIZUMAB [Suspect]
     Indication: METASTATIC RENAL CELL CARCINOMA
     Dosage: EVERY 2 WEEKS.?LAST DOSE PRIOR TO SAE: 27/AUG/2013
     Route: 042
     Dates: start: 20130618
  2. INTERFERON ALFA-2A [Suspect]
     Indication: METASTATIC RENAL CELL CARCINOMA
     Dosage: DOSE: 2X9 MIO IU, THEN 3 MIO IU ?LAST DOSE PRIOR TO SAE: 30/AUG/2013
     Route: 058
     Dates: start: 20130619
  3. AXITINIB [Concomitant]

REACTIONS (1)
  - Hypertensive crisis [Recovered/Resolved]
